FAERS Safety Report 8570567-0 (Version None)
Quarter: 2012Q3

REPORT INFORMATION
  Report Type: 
  Country: None (occurrence: None)
  Receive Date: 20120804
  Receipt Date: 20120723
  Transmission Date: 20120928
  Serious: Yes (Other)
  Sender: FDA-Public Use
  Company Number: US-009507513-1207USA010742

PATIENT

DRUGS (7)
  1. ZOCOR [Suspect]
     Dosage: 40 MG, UNK
     Route: 048
  2. ASPIRIN [Concomitant]
     Dosage: 100 MG, UNK
  3. DIAMICRON MR [Concomitant]
     Dosage: 30 MG, UNK
  4. METFORMIN HCL [Suspect]
     Dosage: 850/50MG, QD
     Route: 048
  5. ATENOLOL [Suspect]
     Dosage: 50 MG, UNK
     Route: 048
  6. LOSARTAN POTASSIUM [Suspect]
     Dosage: 50 MG, UNK
     Route: 048
  7. METFORMIN HYDROCHLORIDE [Concomitant]
     Dosage: 750 MG, UNK

REACTIONS (3)
  - DIABETES MELLITUS [None]
  - NO ADVERSE EVENT [None]
  - HYPERTENSION [None]
